FAERS Safety Report 7631541-1 (Version None)
Quarter: 2011Q3

REPORT INFORMATION
  Report Type: 
  Country: None (occurrence: None)
  Receive Date: 20110725
  Receipt Date: 20110721
  Transmission Date: 20111222
  Serious: Yes (Life-Threatening, Hospitalization, Other)
  Sender: FDA-Public Use
  Company Number: US-ASTRAZENECA-2011SE43585

PATIENT
  Age: 59 Year
  Sex: Male
  Weight: 113.4 kg

DRUGS (2)
  1. PAIN PILLS [Concomitant]
  2. NEXIUM [Suspect]
     Route: 048

REACTIONS (4)
  - PEPTIC ULCER HAEMORRHAGE [None]
  - COLORECTOSTOMY [None]
  - COLON CANCER [None]
  - APPARENT DEATH [None]
